FAERS Safety Report 11822257 (Version 1)
Quarter: 2015Q4

REPORT INFORMATION
  Report Type: Spontaneous
  Country: US (occurrence: US)
  Receive Date: 20151210
  Receipt Date: 20151210
  Transmission Date: 20160305
  Serious: No
  Sender: FDA-Public Use
  Company Number: US-JNJFOC-20150800727

PATIENT
  Sex: Female
  Weight: 54 kg

DRUGS (25)
  1. PREDNISONE. [Concomitant]
     Active Substance: PREDNISONE
     Route: 048
     Dates: start: 20150115
  2. TRAMADOL HYDROCHLORIDE. [Concomitant]
     Active Substance: TRAMADOL HYDROCHLORIDE
  3. DECADRON [Concomitant]
     Active Substance: DEXAMETHASONE
     Dates: start: 20120322, end: 20120322
  4. NAPROXEN. [Concomitant]
     Active Substance: NAPROXEN
  5. MESNA. [Concomitant]
     Active Substance: MESNA
  6. IMODIUM [Concomitant]
     Active Substance: LOPERAMIDE HYDROCHLORIDE
  7. VERAPAMIL HYDROCHLORIDE. [Concomitant]
     Active Substance: VERAPAMIL HYDROCHLORIDE
     Route: 048
     Dates: start: 20131209
  8. CYANOCOBALAMIN. [Concomitant]
     Active Substance: CYANOCOBALAMIN
     Route: 030
  9. IDELALISIB [Concomitant]
     Active Substance: IDELALISIB
     Route: 048
     Dates: start: 20150127
  10. TOLTERODINE L-TARTRATE [Concomitant]
     Active Substance: TOLTERODINE TARTRATE
     Route: 048
     Dates: start: 20150122
  11. CIPRO [Concomitant]
     Active Substance: CIPROFLOXACIN HYDROCHLORIDE
     Indication: URINARY TRACT INFECTION
     Dates: start: 20120605
  12. IMBRUVICA [Suspect]
     Active Substance: IBRUTINIB
     Indication: WALDENSTROM^S MACROGLOBULINAEMIA
     Route: 048
     Dates: start: 20150307
  13. ZOMETA [Concomitant]
     Active Substance: ZOLEDRONIC ACID
  14. LEVAQUIN [Concomitant]
     Active Substance: LEVOFLOXACIN
  15. IMBRUVICA [Suspect]
     Active Substance: IBRUTINIB
     Indication: NON-HODGKIN^S LYMPHOMA
     Route: 048
     Dates: start: 20150307
  16. OMEPRAZOLE. [Concomitant]
     Active Substance: OMEPRAZOLE
  17. IDELALISIB [Concomitant]
     Active Substance: IDELALISIB
     Route: 048
     Dates: start: 20140918
  18. MEDROL [Concomitant]
     Active Substance: METHYLPREDNISOLONE
  19. DECADRON [Concomitant]
     Active Substance: DEXAMETHASONE
     Dosage: Q WEEKLY
     Dates: start: 20121107
  20. MEGACE [Concomitant]
     Active Substance: MEGESTROL ACETATE
     Route: 048
     Dates: start: 20150219, end: 20150404
  21. NEULASTA [Concomitant]
     Active Substance: PEGFILGRASTIM
  22. TORADOL [Concomitant]
     Active Substance: KETOROLAC TROMETHAMINE
  23. IMBRUVICA [Suspect]
     Active Substance: IBRUTINIB
     Indication: CHRONIC LYMPHOCYTIC LEUKAEMIA
     Route: 048
     Dates: start: 20150307
  24. FENTANYL. [Concomitant]
     Active Substance: FENTANYL
  25. IMMUNOGLOBULIN G HUMAN [Concomitant]
     Active Substance: HUMAN IMMUNOGLOBULIN G

REACTIONS (7)
  - Alopecia [Unknown]
  - Protein total abnormal [Unknown]
  - Dry skin [Unknown]
  - Nail disorder [Not Recovered/Not Resolved]
  - Neuropathy peripheral [Unknown]
  - Thyroid disorder [Unknown]
  - Musculoskeletal discomfort [Unknown]

NARRATIVE: CASE EVENT DATE: 2015
